FAERS Safety Report 12743981 (Version 12)
Quarter: 2016Q4

REPORT INFORMATION
  Report Type: Report from Study
  Country: US (occurrence: US)
  Receive Date: 20160914
  Receipt Date: 20161129
  Transmission Date: 20170207
  Serious: Yes (Hospitalization)
  Sender: FDA-Public Use
  Company Number: US-EISAI MEDICAL RESEARCH-EC-2016-020312

PATIENT
  Age: 75 Year
  Sex: Female
  Weight: 73 kg

DRUGS (14)
  1. ERIBULIN [Suspect]
     Active Substance: ERIBULIN
     Dosage: DOSE UNKNOWN
     Route: 041
     Dates: start: 201611
  2. POL6326-07 [Suspect]
     Active Substance: INVESTIGATIONAL PRODUCT
     Dosage: DOSE UNKNOWN
     Route: 041
     Dates: start: 20161121
  3. OLANZAPINE. [Concomitant]
     Active Substance: OLANZAPINE
  4. FUROSEMIDE. [Concomitant]
     Active Substance: FUROSEMIDE
  5. POL6326-07 [Suspect]
     Active Substance: INVESTIGATIONAL PRODUCT
     Route: 041
     Dates: start: 20160722, end: 20160722
  6. ERIBULIN [Suspect]
     Active Substance: ERIBULIN
     Indication: TRIPLE NEGATIVE BREAST CANCER
     Route: 041
     Dates: start: 20160623, end: 20160721
  7. POL6326-07 [Suspect]
     Active Substance: INVESTIGATIONAL PRODUCT
     Indication: TRIPLE NEGATIVE BREAST CANCER
     Route: 041
     Dates: start: 20160622, end: 20160622
  8. POL6326-07 [Suspect]
     Active Substance: INVESTIGATIONAL PRODUCT
     Route: 041
     Dates: start: 20160810, end: 201610
  9. OXYCODONE [Concomitant]
     Active Substance: OXYCODONE
  10. ERIBULIN [Suspect]
     Active Substance: ERIBULIN
     Route: 041
     Dates: start: 20160811, end: 201610
  11. XANAX [Concomitant]
     Active Substance: ALPRAZOLAM
  12. EFFEXOR [Concomitant]
     Active Substance: VENLAFAXINE HYDROCHLORIDE
  13. ONDANSETRON [Concomitant]
     Active Substance: ONDANSETRON
  14. PANTOPRAZOLE [Concomitant]
     Active Substance: PANTOPRAZOLE SODIUM

REACTIONS (4)
  - Urinary tract infection [Unknown]
  - Pyrexia [Recovered/Resolved]
  - Sepsis syndrome [Recovered/Resolved]
  - Pneumonia [Recovered/Resolved]

NARRATIVE: CASE EVENT DATE: 20160727
